FAERS Safety Report 26209147 (Version 1)
Quarter: 2025Q4

REPORT INFORMATION
  Report Type: Spontaneous
  Country: EU (occurrence: EU)
  Receive Date: 20251229
  Receipt Date: 20251229
  Transmission Date: 20260118
  Serious: Yes (Other)
  Sender: NOVARTIS
  Company Number: EU-002147023-NVSC2025IT196908

PATIENT
  Age: 60 Year
  Sex: Female

DRUGS (1)
  1. ILARIS [Suspect]
     Active Substance: CANAKINUMAB
     Indication: Product used for unknown indication
     Dosage: 150 MG, Q4W (EVERY 28 DAYS)
     Route: 065

REACTIONS (6)
  - Pain in extremity [Unknown]
  - Neurovascular conflict [Unknown]
  - Condition aggravated [Unknown]
  - Eye irritation [Unknown]
  - Swelling of eyelid [Unknown]
  - Gastrointestinal disorder [Unknown]
